FAERS Safety Report 9569697 (Version 2)
Quarter: 2013Q3

REPORT INFORMATION
  Report Type: Spontaneous
  Country: US (occurrence: US)
  Receive Date: 20130930
  Receipt Date: 20130930
  Transmission Date: 20140515
  Serious: No
  Sender: FDA-Public Use
  Company Number: US-AMGEN-USASP2013063194

PATIENT
  Age: 51 Year
  Sex: Male
  Weight: 78.91 kg

DRUGS (7)
  1. ENBREL [Suspect]
     Indication: ANKYLOSING SPONDYLITIS
     Dosage: 50 MG, QWK
     Route: 058
     Dates: start: 20130617
  2. METHOTREXATE [Concomitant]
     Dosage: 10 MG, QWK
  3. BUPAP [Concomitant]
     Dosage: 50 MG, BID (50-650 MG)
     Dates: start: 20120904
  4. CYCLOBENZAPRINE HCL [Concomitant]
     Dosage: 10 MG, TID
     Route: 048
     Dates: start: 20121005
  5. DICLOFENAC SODIUM [Concomitant]
     Dosage: 50 MG, BID (DELAYED RELEASE)
     Route: 048
     Dates: start: 20130429
  6. FOLIC ACID [Concomitant]
     Indication: ANKYLOSING SPONDYLITIS
     Dosage: 1 MG, QD (TAKE 1 TAB DAILY AS DIRECTED)
     Route: 048
     Dates: start: 20120730
  7. GABAPENTINE [Concomitant]
     Dosage: 300 MG, UNK
     Route: 048
     Dates: start: 20130506

REACTIONS (4)
  - Musculoskeletal pain [Not Recovered/Not Resolved]
  - Migraine [Recovering/Resolving]
  - Pain in extremity [Not Recovered/Not Resolved]
  - Neck pain [Not Recovered/Not Resolved]
